FAERS Safety Report 9255781 (Version 1)
Quarter: 2013Q2

REPORT INFORMATION
  Report Type: Spontaneous
  Country: BR (occurrence: BR)
  Receive Date: 20130425
  Receipt Date: 20130425
  Transmission Date: 20140414
  Serious: Yes (Hospitalization, Other)
  Sender: FDA-Public Use
  Company Number: BR-ASTRAZENECA-2013SE25721

PATIENT
  Age: 81 Year
  Sex: Female
  Weight: 63 kg

DRUGS (7)
  1. CRESTOR [Suspect]
     Indication: BLOOD CHOLESTEROL INCREASED
     Route: 048
     Dates: start: 2011
  2. CRESTOR [Suspect]
     Indication: BLOOD CHOLESTEROL INCREASED
     Route: 048
  3. ANASTROZOLE [Suspect]
     Indication: BREAST CANCER
     Dosage: DAILY
  4. OSTEONUTRE [Concomitant]
     Indication: OSTEOPOROSIS PROPHYLAXIS
  5. CALCIUM [Concomitant]
     Indication: OSTEOPOROSIS PROPHYLAXIS
  6. DAFLON [Concomitant]
     Indication: POOR PERIPHERAL CIRCULATION
  7. UNKNOWN [Concomitant]
     Indication: HYPOTHYROIDISM

REACTIONS (4)
  - Breast cancer [Recovered/Resolved]
  - Weight decreased [Not Recovered/Not Resolved]
  - Rhinorrhoea [Not Recovered/Not Resolved]
  - Pain in extremity [Recovered/Resolved]
